FAERS Safety Report 8893401 (Version 3)
Quarter: 2014Q2

REPORT INFORMATION
  Report Type: Spontaneous
  Country: US (occurrence: US)
  Receive Date: 20121108
  Receipt Date: 20140508
  Transmission Date: 20141212
  Serious: Yes (Hospitalization, Other)
  Sender: FDA-Public Use
  Company Number: US-BAYER-2012-115884

PATIENT
  Age: 29 Year
  Sex: Female
  Weight: 57 kg

DRUGS (4)
  1. YAZ [Suspect]
     Dosage: UNK
     Dates: start: 20010101, end: 2004
  2. YASMIN [Suspect]
     Dosage: UNK
     Dates: start: 20010101, end: 2005
  3. NUVARING [Concomitant]
     Indication: GENITAL HAEMORRHAGE
  4. NUVARING [Concomitant]
     Indication: PAIN

REACTIONS (11)
  - Cholelithiasis [None]
  - Cholecystitis chronic [None]
  - Nephrolithiasis [None]
  - Pain [None]
  - Injury [None]
  - General physical health deterioration [None]
  - Anxiety [None]
  - Anhedonia [None]
  - Emotional distress [None]
  - Pain [None]
  - Metrorrhagia [None]
